FAERS Safety Report 5737927-4 (Version None)
Quarter: 2008Q2

REPORT INFORMATION
  Report Type: 
  Country: None (occurrence: None)
  Receive Date: 20080509
  Receipt Date: 20080424
  Transmission Date: 20081010
  Serious: Yes (Hospitalization)
  Sender: FDA-Public Use
  Company Number: 2008S1007169

PATIENT
  Age: 81 Year
  Sex: Male

DRUGS (5)
  1. WARFARIN SODIUM [Suspect]
     Indication: ATRIAL FIBRILLATION
  2. WARFARIN SODIUM [Suspect]
     Indication: MYOCARDIAL ISCHAEMIA
  3. ASPIRIN [Suspect]
     Indication: ATRIAL FIBRILLATION
  4. ASPIRIN [Suspect]
     Indication: MYOCARDIAL ISCHAEMIA
  5. ANTIBIOTIC NOS [Suspect]

REACTIONS (5)
  - DRUG INTERACTION [None]
  - INTERNATIONAL NORMALISED RATIO INCREASED [None]
  - OBSTRUCTIVE AIRWAYS DISORDER [None]
  - PHARYNGEAL HAEMORRHAGE [None]
  - TONGUE HAEMATOMA [None]
